FAERS Safety Report 5368094-7 (Version None)
Quarter: 2007Q2

REPORT INFORMATION
  Report Type: 
  Country: None (occurrence: None)
  Receive Date: 20070622
  Receipt Date: 20070607
  Transmission Date: 20071010
  Serious: Yes (Life-Threatening, Hospitalization)
  Sender: FDA-Public Use
  Company Number: US-PFIZER INC-2007049622

PATIENT
  Age: 88 Year
  Sex: Female

DRUGS (1)
  1. TOLTERODINE LA [Suspect]
     Indication: URGE INCONTINENCE

REACTIONS (1)
  - SMALL INTESTINAL OBSTRUCTION [None]
